FAERS Safety Report 9686366 (Version 1)
Quarter: 2013Q4

REPORT INFORMATION
  Report Type: Other
  Country: MY (occurrence: MY)
  Receive Date: 20131113
  Receipt Date: 20131113
  Transmission Date: 20140711
  Serious: Yes (Hospitalization, Other)
  Sender: FDA-Public Use
  Company Number: MY-BRISTOL-MYERS SQUIBB COMPANY-19806413

PATIENT
  Age: 67 Year
  Sex: Female

DRUGS (5)
  1. METFORMIN HCL [Suspect]
  2. IMIPENEM [Suspect]
     Indication: BURKHOLDERIA PSEUDOMALLEI INFECTION
     Route: 042
  3. GLICLAZIDE [Concomitant]
  4. HYDROCHLOROTHIAZIDE [Concomitant]
  5. PERINDOPRIL [Concomitant]

REACTIONS (3)
  - Burkholderia pseudomallei infection [Unknown]
  - Convulsion [Recovered/Resolved]
  - Prescribed overdose [Unknown]
